FAERS Safety Report 6814265-X (Version None)
Quarter: 2010Q3

REPORT INFORMATION
  Report Type: 
  Country: None (occurrence: None)
  Receive Date: 20100702
  Receipt Date: 20100621
  Transmission Date: 20110219
  Serious: Yes (Hospitalization, Other)
  Sender: FDA-Public Use
  Company Number: US-SANOFI-AVENTIS-2010SA036221

PATIENT
  Age: 90 Year
  Sex: Female

DRUGS (7)
  1. MULTAQ [Suspect]
     Indication: ATRIAL FIBRILLATION
     Route: 048
     Dates: start: 20100606
  2. LASIX [Concomitant]
  3. SYNTHROID [Concomitant]
  4. SYNTHROID [Concomitant]
     Dates: start: 20100601
  5. DILTIAZEM [Concomitant]
  6. DIGOXIN [Concomitant]
  7. OXYGEN [Concomitant]

REACTIONS (5)
  - DYSPNOEA [None]
  - FATIGUE [None]
  - FLUID RETENTION [None]
  - THYROID DISORDER [None]
  - WEIGHT INCREASED [None]
